FAERS Safety Report 11518013 (Version 1)
Quarter: 2015Q3

REPORT INFORMATION
  Report Type: Spontaneous
  Country: IT (occurrence: IT)
  Receive Date: 20150917
  Receipt Date: 20150917
  Transmission Date: 20151125
  Serious: Yes (Hospitalization)
  Sender: FDA-Public Use
  Company Number: IT-BAYER-2015-419984

PATIENT
  Age: 1 Year
  Sex: Female

DRUGS (1)
  1. CHLORPHENIRAMINE MALEATE. [Suspect]
     Active Substance: CHLORPHENIRAMINE MALEATE
     Indication: ACCIDENTAL EXPOSURE TO PRODUCT
     Dosage: 4 MG, UNK
     Route: 048
     Dates: start: 20150905, end: 20150905

REACTIONS (2)
  - Pallor [Recovered/Resolved]
  - Somnolence [Recovered/Resolved]

NARRATIVE: CASE EVENT DATE: 20150905
